FAERS Safety Report 6802941-4 (Version None)
Quarter: 2010Q2

REPORT INFORMATION
  Report Type: 
  Country: None (occurrence: None)
  Receive Date: 20100628
  Receipt Date: 20100620
  Transmission Date: 20101027
  Serious: Yes (Hospitalization)
  Sender: FDA-Public Use
  Company Number: JABEL40827

PATIENT
  Age: 52 Year
  Sex: Male
  Weight: 110 kg

DRUGS (2)
  1. VERMOX [Suspect]
     Indication: HELMINTHIC INFECTION
     Route: 048
     Dates: start: 19970515
  2. VERMOX [Suspect]
     Route: 048
     Dates: start: 19970515

REACTIONS (1)
  - GRANULOMATOUS LIVER DISEASE [None]
